FAERS Safety Report 4357721-9 (Version None)
Quarter: 2004Q2

REPORT INFORMATION
  Report Type: 
  Country: None (occurrence: None)
  Receive Date: 20040513
  Receipt Date: 20040504
  Transmission Date: 20050107
  Serious: Yes (Other)
  Sender: FDA-Public Use
  Company Number: ES-GLAXOSMITHKLINE-B0331807A

PATIENT
  Sex: Female

DRUGS (1)
  1. BUPROPION HCL [Suspect]

REACTIONS (1)
  - BLINDNESS [None]
